FAERS Safety Report 10558274 (Version 2)
Quarter: 2014Q4

REPORT INFORMATION
  Report Type: Spontaneous
  Country: US (occurrence: US)
  Receive Date: 20141031
  Receipt Date: 20141118
  Transmission Date: 20150529
  Serious: No
  Sender: FDA-Public Use
  Company Number: US-BAYER-2014-157153

PATIENT
  Age: 17 Year
  Sex: Female

DRUGS (1)
  1. CLIMARA PRO [Suspect]
     Active Substance: ESTRADIOL\LEVONORGESTREL
     Indication: TURNER^S SYNDROME
     Dosage: UNK
     Route: 062
     Dates: start: 201409

REACTIONS (5)
  - Application site rash [None]
  - Product adhesion issue [None]
  - Application site reaction [None]
  - Off label use [None]
  - Application site rash [None]

NARRATIVE: CASE EVENT DATE: 2014
